FAERS Safety Report 10039881 (Version 2)
Quarter: 2014Q1

REPORT INFORMATION
  Report Type: Spontaneous
  Country: US (occurrence: US)
  Receive Date: 20140326
  Receipt Date: 20140328
  Transmission Date: 20141002
  Serious: Yes (Hospitalization)
  Sender: FDA-Public Use
  Company Number: US-JNJFOC-20140310091

PATIENT
  Age: 21 Year
  Sex: Male
  Weight: 58.2 kg

DRUGS (1)
  1. INFLIXIMAB [Suspect]
     Indication: IMMUNOLOGY TEST
     Route: 042
     Dates: start: 20130709, end: 20130709

REACTIONS (5)
  - Myalgia [Recovered/Resolved]
  - Cough [Unknown]
  - Arthralgia [Unknown]
  - Body temperature increased [Unknown]
  - Muscular weakness [Unknown]
